FAERS Safety Report 16594949 (Version 1)
Quarter: 2019Q3

REPORT INFORMATION
  Report Type: Spontaneous
  Country: US (occurrence: US)
  Receive Date: 20190718
  Receipt Date: 20190718
  Transmission Date: 20191004
  Serious: No
  Sender: FDA-Public Use
  Company Number: US-ELI_LILLY_AND_COMPANY-US201907009452

PATIENT
  Sex: Male

DRUGS (3)
  1. GLUCAGON. [Suspect]
     Active Substance: GLUCAGON
     Dosage: UNK,
     Route: 065
  2. GLUCAGON. [Suspect]
     Active Substance: GLUCAGON
     Dosage: UNK,
     Route: 065
  3. GLUCAGON. [Suspect]
     Active Substance: GLUCAGON
     Indication: PRODUCT USED FOR UNKNOWN INDICATION
     Dosage: UNK,
     Route: 065

REACTIONS (2)
  - Incorrect dose administered [Unknown]
  - Product prescribing error [Unknown]
